FAERS Safety Report 18221589 (Version 1)
Quarter: 2020Q3

REPORT INFORMATION
  Report Type: Spontaneous
  Country: US (occurrence: US)
  Receive Date: 20200901
  Receipt Date: 20200901
  Transmission Date: 20201103
  Serious: Yes (Other)
  Sender: FDA-Public Use
  Company Number: None

PATIENT
  Age: 68 Year
  Sex: Male
  Weight: 96.75 kg

DRUGS (5)
  1. DOFETILIDE 0.5 MG CAP BIONPHARMA [Suspect]
     Active Substance: DOFETILIDE
     Indication: ATRIAL FIBRILLATION
     Dosage: ?          QUANTITY:1 CAPSULE(S);?
     Dates: start: 20200814, end: 20200821
  2. CPAP [Concomitant]
     Active Substance: DEVICE
  3. LOSARTAN. [Concomitant]
     Active Substance: LOSARTAN
  4. DILTIAZEN [Concomitant]
     Active Substance: DILTIAZEM
  5. COENZYME Q10 [Concomitant]
     Active Substance: DIETARY SUPPLEMENT\UBIDECARENONE

REACTIONS (3)
  - Heart rate irregular [None]
  - Atrial fibrillation [None]
  - Palpitations [None]

NARRATIVE: CASE EVENT DATE: 20200828
